FAERS Safety Report 4744738-5 (Version None)
Quarter: 2005Q3

REPORT INFORMATION
  Report Type: 
  Country: None (occurrence: None)
  Receive Date: 20050815
  Receipt Date: 20050802
  Transmission Date: 20060218
  Serious: Yes (Death)
  Sender: FDA-Public Use
  Company Number: US-AMGEN-US145194

PATIENT
  Sex: Female
  Weight: 58 kg

DRUGS (8)
  1. DARBEPOETIN ALFA [Suspect]
     Indication: ANAEMIA OF MALIGNANT DISEASE
     Dates: start: 20041112, end: 20050705
  2. ZEVALIN [Suspect]
     Indication: NON-HODGKIN'S LYMPHOMA
     Route: 042
     Dates: end: 20050525
  3. RITUXIMAB [Concomitant]
     Route: 042
  4. PREDNISONE [Concomitant]
  5. VINCRISTINE [Concomitant]
  6. CYCLOPHOSPHAMIDE [Concomitant]
  7. DOXORUBICIN HYDROCHLORIDE [Concomitant]
  8. RADIATION THERAPY [Concomitant]
     Dates: end: 20050525

REACTIONS (5)
  - ARTHRALGIA [None]
  - DEATH [None]
  - HAEMORRHAGE [None]
  - HEADACHE [None]
  - PANCYTOPENIA [None]
